FAERS Safety Report 5476282-4 (Version None)
Quarter: 2007Q4

REPORT INFORMATION
  Report Type: 
  Country: None (occurrence: None)
  Receive Date: 20071003
  Receipt Date: 20070921
  Transmission Date: 20080405
  Serious: Yes (Other)
  Sender: FDA-Public Use
  Company Number: GB-PFIZER INC-2007079267

PATIENT
  Age: 56 Year
  Sex: Male
  Weight: 80 kg

DRUGS (3)
  1. CHAMPIX [Suspect]
     Indication: SMOKING CESSATION THERAPY
     Route: 048
     Dates: start: 20070819, end: 20070902
  2. DIAZEPAM [Concomitant]
     Route: 048
  3. QUETIAPINE FUMARATE [Concomitant]
     Route: 048

REACTIONS (1)
  - DEPRESSION [None]
